FAERS Safety Report 6275006-0 (Version None)
Quarter: 2009Q3

REPORT INFORMATION
  Report Type: 
  Country: None (occurrence: None)
  Receive Date: 20090717
  Receipt Date: 20090703
  Transmission Date: 20100115
  Serious: Yes (Other)
  Sender: FDA-Public Use
  Company Number: 001227

PATIENT
  Sex: Female

DRUGS (2)
  1. VIMPAT [Suspect]
     Dosage: (400 MG)
     Dates: start: 20090101
  2. VIMPAT [Suspect]
     Dosage: (400 MG)
     Dates: start: 20090301

REACTIONS (1)
  - IDIOPATHIC THROMBOCYTOPENIC PURPURA [None]
